FAERS Safety Report 7574393-0 (Version None)
Quarter: 2011Q2

REPORT INFORMATION
  Report Type: 
  Country: None (occurrence: None)
  Receive Date: 20110627
  Receipt Date: 20110128
  Transmission Date: 20111010
  Serious: Yes (Hospitalization, Other)
  Sender: FDA-Public Use
  Company Number: US-BAYER-201034369NA

PATIENT
  Age: 46 Year
  Sex: Female
  Weight: 57 kg

DRUGS (4)
  1. XANAX [Concomitant]
     Indication: ANXIETY
  2. YASMIN [Suspect]
     Indication: HORMONE REPLACEMENT THERAPY
     Route: 048
     Dates: start: 20061001, end: 20070401
  3. TRAZODONE HCL [Concomitant]
     Indication: PAIN
  4. CARDIZEM [Concomitant]
     Indication: ANGINA PECTORIS

REACTIONS (1)
  - DEEP VEIN THROMBOSIS [None]
